FAERS Safety Report 7078831-1 (Version None)
Quarter: 2010Q4

REPORT INFORMATION
  Report Type: 
  Country: None (occurrence: None)
  Receive Date: 20101102
  Receipt Date: 20101027
  Transmission Date: 20110411
  Serious: Yes (Other)
  Sender: FDA-Public Use
  Company Number: US-PFIZER INC-2010136977

PATIENT
  Age: 52 Year
  Sex: Male
  Weight: 115 kg

DRUGS (7)
  1. BLINDED *NO SUBJECT DRUG [Suspect]
     Indication: RENAL CELL CARCINOMA
     Dosage: 1X/DAY
     Route: 048
     Dates: start: 20091013
  2. BLINDED *PLACEBO [Suspect]
     Indication: RENAL CELL CARCINOMA
     Dosage: 1X/DAY
     Route: 048
     Dates: start: 20091013
  3. BLINDED *SORAFENIB [Suspect]
     Indication: RENAL CELL CARCINOMA
     Dosage: 1X/DAY
     Route: 048
     Dates: start: 20091013
  4. SUNITINIB MALATE [Suspect]
     Indication: RENAL CELL CARCINOMA
     Dosage: 1X/DAY
     Route: 048
     Dates: start: 20091013
  5. LEXAPRO [Concomitant]
  6. METOPROLOL [Concomitant]
  7. SIMVASTATIN [Concomitant]

REACTIONS (1)
  - DERMATITIS ACNEIFORM [None]
